FAERS Safety Report 4683939-1 (Version None)
Quarter: 2005Q2

REPORT INFORMATION
  Report Type: 
  Country: None (occurrence: None)
  Receive Date: 20050602
  Receipt Date: 20050421
  Transmission Date: 20051028
  Serious: No
  Sender: FDA-Public Use
  Company Number: 200417856BWH

PATIENT
  Age: 64 Year
  Sex: Male
  Weight: 104.3273 kg

DRUGS (6)
  1. LEVITRA [Suspect]
     Indication: ERECTILE DYSFUNCTION
     Dosage: SEE IMAGE
     Route: 048
     Dates: start: 20040401
  2. ZOLOFT [Concomitant]
  3. WELLBUTRIN [Concomitant]
  4. XANAX [Concomitant]
  5. MULTI-VITAMIN [Concomitant]
  6. MAGNESIUM SUPPLEMENT [Concomitant]

REACTIONS (7)
  - ERECTILE DYSFUNCTION [None]
  - FLUSHING [None]
  - HEADACHE [None]
  - NAUSEA [None]
  - PEYRONIE'S DISEASE [None]
  - RHINORRHOEA [None]
  - STOMACH DISCOMFORT [None]
